FAERS Safety Report 10465089 (Version 1)
Quarter: 2014Q3

REPORT INFORMATION
  Report Type: Other
  Country: DE (occurrence: DE)
  Receive Date: 20140919
  Receipt Date: 20140919
  Transmission Date: 20150326
  Serious: Yes (Congenital Anomaly)
  Sender: FDA-Public Use
  Company Number: DE-MYLANLABS-2014M1004011

PATIENT

DRUGS (9)
  1. METOPROLOL [Suspect]
     Active Substance: METOPROLOL
     Indication: HYPERTENSION
     Dosage: 150 [MG/D ]
     Route: 064
     Dates: start: 20121206, end: 20130601
  2. THYROXIN [Concomitant]
     Active Substance: LEVOTHYROXINE
     Indication: HYPOTHYROIDISM
     Dosage: 75 [?G/D ]
     Route: 064
     Dates: start: 20121206, end: 20130619
  3. FOLIO [Concomitant]
     Active Substance: FOLIC ACID
     Indication: PROPHYLAXIS OF NEURAL TUBE DEFECT
     Dosage: 0.4 [MG/D ]
     Route: 064
     Dates: start: 20121206, end: 20130314
  4. HYDROCHLOROTHIAZIDE. [Suspect]
     Active Substance: HYDROCHLOROTHIAZIDE
     Indication: HYPERTENSION
     Dosage: 50 [MG/D (2X25) ]
     Route: 064
     Dates: start: 20121206, end: 20130314
  5. VALSARTAN. [Suspect]
     Active Substance: VALSARTAN
     Indication: HYPERTENSION
     Dosage: 160 [MG/D ]
     Route: 064
     Dates: start: 20121206, end: 20130311
  6. METHYLDOPA. [Concomitant]
     Active Substance: METHYLDOPA
     Indication: HYPERTENSION
     Dosage: 75 [MG/D (3X25MG/D) ]
     Route: 064
     Dates: start: 20130312, end: 20130619
  7. DIAZEPAM. [Concomitant]
     Active Substance: DIAZEPAM
     Indication: ACUTE STRESS DISORDER
     Dosage: AFTER THE DEATH OF HER MOTHER, IF REQUIRED.
     Route: 064
  8. NEPRESOL [Concomitant]
     Active Substance: DIHYDRALAZINE SULFATE
     Indication: HYPERTENSION
     Dosage: UNK
     Route: 064
  9. NOVORAPID [Concomitant]
     Active Substance: INSULIN ASPART
     Indication: TYPE 1 DIABETES MELLITUS
     Dosage: INSULIN ASPART
     Route: 064
     Dates: start: 20121206, end: 20130619

REACTIONS (7)
  - Ventricular septal defect [Recovering/Resolving]
  - Hypospadias [Not Recovered/Not Resolved]
  - Foetal exposure during pregnancy [Unknown]
  - Atrial septal defect [Not Recovered/Not Resolved]
  - Pulmonary valve stenosis congenital [Not Recovered/Not Resolved]
  - Hypoacusis [Not Recovered/Not Resolved]
  - Patent ductus arteriosus [Recovered/Resolved with Sequelae]

NARRATIVE: CASE EVENT DATE: 20130619
